FAERS Safety Report 8777442 (Version 2)
Quarter: 2012Q4

REPORT INFORMATION
  Report Type: 
  Country: US (occurrence: US)
  Receive Date: 20120911
  Receipt Date: 20120919
  Transmission Date: 20130627
  Serious: Yes (Other)
  Sender: FDA-Public Use
  Company Number: US-PFIZER INC-2012222878

PATIENT
  Sex: Female

DRUGS (4)
  1. DILANTIN [Suspect]
     Dosage: UNK
     Dates: start: 20120514, end: 20120904
  2. DILANTIN [Suspect]
     Dosage: UNK
  3. NEURONTIN [Suspect]
     Dosage: UNK
     Dates: start: 20120514, end: 20120904
  4. NEURONTIN [Suspect]
     Dosage: UNK

REACTIONS (1)
  - Convulsion [Unknown]
